FAERS Safety Report 6010279-0 (Version None)
Quarter: 2008Q4

REPORT INFORMATION
  Report Type: 
  Country: None (occurrence: None)
  Receive Date: 20081218
  Receipt Date: 20080407
  Transmission Date: 20090506
  Serious: No
  Sender: FDA-Public Use
  Company Number: A0722636A

PATIENT
  Age: 30 Month
  Sex: Male

DRUGS (1)
  1. FLONASE [Suspect]
     Indication: ILL-DEFINED DISORDER
     Route: 045

REACTIONS (2)
  - EPISTAXIS [None]
  - OFF LABEL USE [None]
